FAERS Safety Report 7259868-6 (Version None)
Quarter: 2011Q1

REPORT INFORMATION
  Report Type: 
  Country: None (occurrence: None)
  Receive Date: 20110130
  Receipt Date: 20100907
  Transmission Date: 20110831
  Serious: No
  Sender: FDA-Public Use
  Company Number: US-ABBOTT-10P-163-0669316-00

PATIENT
  Age: 73 Year
  Sex: Male

DRUGS (4)
  1. COUMADIN [Concomitant]
     Indication: PROTEIN C DEFICIENCY
  2. PENTASA [Concomitant]
     Indication: CROHN'S DISEASE
     Route: 048
  3. HUMIRA [Suspect]
     Indication: CROHN'S DISEASE
     Dates: start: 20100501
  4. VICODIN [Concomitant]
     Indication: PAIN
     Dosage: 5/500MG
     Route: 048

REACTIONS (1)
  - ABDOMINAL PAIN [None]
